FAERS Safety Report 8385753-2 (Version None)
Quarter: 2012Q2

REPORT INFORMATION
  Report Type: 
  Country: None (occurrence: None)
  Receive Date: 20120525
  Receipt Date: 20120514
  Transmission Date: 20120825
  Serious: No
  Sender: FDA-Public Use
  Company Number: US-B.I. PHARMACEUTICALS,INC./RIDGEFIELD-2011-BP-14966BP

PATIENT
  Sex: Female

DRUGS (16)
  1. POTASSIUM CHLORIDE [Concomitant]
     Dosage: 10 MEQ
     Route: 048
     Dates: start: 19710101
  2. PLENDIL [Concomitant]
     Indication: HYPERTENSION
     Dosage: 5 MG
     Route: 048
     Dates: start: 19710101
  3. LEVOTHYROXINE SODIUM [Concomitant]
     Indication: HYPOTHYROIDISM
     Dosage: 0.05 MG
     Route: 048
     Dates: start: 20060101
  4. LASIX [Concomitant]
     Indication: OEDEMA
     Dosage: 40 MG
     Route: 048
     Dates: start: 20010101
  5. DIGOXIN [Concomitant]
     Indication: ATRIAL FIBRILLATION
     Dosage: 0.125 MG
     Route: 048
     Dates: start: 19710101
  6. PRADAXA [Suspect]
     Dosage: 300 MG
     Route: 048
     Dates: start: 20111001, end: 20120401
  7. PRADAXA [Suspect]
     Dosage: 150 MG
     Route: 048
  8. RAMIPRIL [Concomitant]
     Indication: HYPERTENSION
     Route: 048
  9. PRADAXA [Suspect]
     Indication: ATRIAL FIBRILLATION
     Dosage: 300 MG
     Route: 048
     Dates: start: 20110606
  10. HYDROCODONE [Concomitant]
     Indication: PAIN IN EXTREMITY
     Route: 048
     Dates: start: 20110601
  11. ATENOLOL [Concomitant]
     Indication: ATRIAL FIBRILLATION
     Dosage: 50 MG
     Route: 048
     Dates: start: 19710101
  12. LASIX [Concomitant]
     Indication: OEDEMA PERIPHERAL
  13. DIOVAN [Concomitant]
     Indication: HYPERTENSION
     Dosage: 80 MG
     Route: 048
     Dates: start: 19710101
  14. ISOSORBIDE DINITRATE [Concomitant]
     Route: 048
  15. PREMARIN [Concomitant]
     Indication: MENOPAUSE
     Dosage: 0.3 MG
     Route: 048
     Dates: start: 19710101
  16. PRIMIDONE [Concomitant]

REACTIONS (7)
  - INCISION SITE HAEMORRHAGE [None]
  - DIARRHOEA [None]
  - WEIGHT DECREASED [None]
  - EPISTAXIS [None]
  - OEDEMA PERIPHERAL [None]
  - SENSATION OF FOREIGN BODY [None]
  - CONTUSION [None]
